FAERS Safety Report 9380405 (Version 1)
Quarter: 2013Q2

REPORT INFORMATION
  Report Type: Spontaneous
  Country: US (occurrence: None)
  Receive Date: 20130628
  Receipt Date: 20130628
  Transmission Date: 20140414
  Serious: Yes (Death, Other)
  Sender: FDA-Public Use
  Company Number: AG-2013-014422

PATIENT
  Age: 1 Year
  Sex: 0

DRUGS (3)
  1. BUSULFAN [Suspect]
     Indication: BONE MARROW TRANSPLANT
  2. CYCLOPHOSPHAMIDE (CYCLOPHOSPHAMIDE) [Suspect]
     Indication: BONE MARROW TRANSPLANT
  3. ANTITHYMOCYTE IMMUNOGLOBULIN [Suspect]
     Indication: BONE MARROW TRANSPLANT

REACTIONS (7)
  - Pulmonary hypertension [None]
  - Off label use [None]
  - Pulmonary haemorrhage [None]
  - Serratia test positive [None]
  - Epstein-Barr virus test positive [None]
  - Adenovirus test positive [None]
  - Post procedural complication [None]
